FAERS Safety Report 6823476-9 (Version None)
Quarter: 2010Q3

REPORT INFORMATION
  Report Type: 
  Country: None (occurrence: None)
  Receive Date: 20100708
  Receipt Date: 20100701
  Transmission Date: 20110219
  Serious: Yes (Hospitalization)
  Sender: FDA-Public Use
  Company Number: PHHO2010DE09162

PATIENT
  Sex: Male
  Weight: 64 kg

DRUGS (4)
  1. AFINITOR [Suspect]
     Indication: METASTATIC RENAL CELL CARCINOMA
     Dosage: UNK
     Route: 048
     Dates: start: 20100127
  2. AFINITOR [Suspect]
     Dosage: UNK
     Route: 048
     Dates: start: 20100526, end: 20100609
  3. AVASTIN [Suspect]
     Indication: METASTATIC RENAL CELL CARCINOMA
     Dosage: UNK
     Route: 048
     Dates: start: 20100127
  4. AVASTIN [Suspect]
     Dosage: UNK
     Route: 042
     Dates: start: 20100526, end: 20100609

REACTIONS (8)
  - CONCOMITANT DISEASE PROGRESSION [None]
  - DECREASED APPETITE [None]
  - DRUG INEFFECTIVE [None]
  - LIPASE INCREASED [None]
  - NAUSEA [None]
  - PANCREATITIS [None]
  - PANCREATITIS ACUTE [None]
  - PANCREATITIS CHRONIC [None]
